FAERS Safety Report 20684008 (Version 1)
Quarter: 2022Q2

REPORT INFORMATION
  Report Type: Spontaneous
  Country: ES (occurrence: ES)
  Receive Date: 20220407
  Receipt Date: 20220407
  Transmission Date: 20220721
  Serious: Yes (Hospitalization, Other)
  Sender: FDA-Public Use
  Company Number: ES-SA-2022SA056076

PATIENT
  Age: 61 Year
  Sex: Female

DRUGS (10)
  1. ENTECAVIR [Suspect]
     Active Substance: ENTECAVIR
     Indication: Hepatitis B reactivation
     Dosage: UNK
  2. TRANEXAMIC ACID [Suspect]
     Active Substance: TRANEXAMIC ACID
     Indication: Autoimmune hepatitis
     Dosage: UNK
     Route: 042
  3. TRANEXAMIC ACID [Suspect]
     Active Substance: TRANEXAMIC ACID
     Indication: Product used for unknown indication
     Dosage: 1 GRAM, 1 G/8H
     Route: 048
  4. FERROUS SULFATE [Suspect]
     Active Substance: FERROUS SULFATE
     Indication: Autoimmune hepatitis
     Dosage: 80 MILLIGRAM, QD
     Route: 048
  5. FERROUS SULFATE [Suspect]
     Active Substance: FERROUS SULFATE
     Dosage: UNK
  6. AZATHIOPRINE [Suspect]
     Active Substance: AZATHIOPRINE
     Indication: Hepatic haematoma
     Dosage: 1.5 MILLIGRAM/KILOGRAM, QD(1.5 MG/KG, QD)
  7. PREDNISONE [Concomitant]
     Active Substance: PREDNISONE
     Indication: Hepatitis B reactivation
     Dosage: 1 MILLIGRAM/KILOGRAM, QD(1 MG/KG, QD)
     Route: 048
  8. HUMAN RED BLOOD CELL [Concomitant]
     Active Substance: HUMAN RED BLOOD CELL
     Indication: Haemorrhage
     Dosage: TWO PACKED RED BLOOD CELL UNITS (RBCU) WERE ALSO TRANSFUSED
  9. URSODIOL [Concomitant]
     Active Substance: URSODIOL
     Indication: Hepatitis B reactivation
     Dosage: UNK
  10. FERROUS SULFATE [Concomitant]
     Active Substance: FERROUS SULFATE
     Indication: Autoimmune hepatitis
     Dosage: UNK

REACTIONS (4)
  - Neutropenia [Recovered/Resolved]
  - Product use in unapproved indication [Unknown]
  - Subcapsular hepatic haematoma [Unknown]
  - Off label use [Unknown]
